FAERS Safety Report 7715371-8 (Version None)
Quarter: 2011Q3

REPORT INFORMATION
  Report Type: 
  Country: None (occurrence: None)
  Receive Date: 20110829
  Receipt Date: 20110815
  Transmission Date: 20111222
  Serious: Yes (Hospitalization, Other)
  Sender: FDA-Public Use
  Company Number: US-ELI_LILLY_AND_COMPANY-US201012000561

PATIENT
  Sex: Male
  Weight: 86.168 kg

DRUGS (22)
  1. CLONIDINE [Concomitant]
  2. FORTEO [Suspect]
     Indication: OSTEOPOROSIS
     Dosage: 20 UG, QD
     Route: 058
  3. FORTEO [Suspect]
     Dosage: 20 UG, QD
     Route: 058
  4. FORTEO [Suspect]
     Dosage: 20 UG, QD
     Route: 058
  5. NITROGLYCERIN [Concomitant]
  6. CARVEDILOL [Concomitant]
  7. SPIRIVA [Concomitant]
  8. FORTEO [Suspect]
     Dosage: 20 UG, QD
     Route: 058
  9. FORTEO [Suspect]
     Dosage: 20 UG, QD
     Route: 058
     Dates: start: 20110714
  10. LASIX [Concomitant]
  11. CATAPRES                                /UNK/ [Concomitant]
  12. GINKGO [Concomitant]
  13. FORTEO [Suspect]
     Dosage: 20 UG, QD
     Route: 058
  14. LEVOTHYROXINE SODIUM [Concomitant]
  15. COREG [Concomitant]
  16. LISINOPRIL [Concomitant]
  17. COUMADIN [Concomitant]
  18. WARFARIN                           /00014802/ [Concomitant]
  19. POTASSIUM CHLORIDE [Concomitant]
  20. MULTI-VITAMIN [Concomitant]
  21. COMBIVENT [Concomitant]
  22. CLAVULANATE POTASSIUM [Concomitant]

REACTIONS (13)
  - FEELING COLD [None]
  - INJECTION SITE PAIN [None]
  - CHRONIC OBSTRUCTIVE PULMONARY DISEASE [None]
  - INJECTION SITE DISCOMFORT [None]
  - PNEUMONIA [None]
  - URINE ANALYSIS ABNORMAL [None]
  - INJECTION SITE PRURITUS [None]
  - INJECTION SITE HAEMATOMA [None]
  - BACK PAIN [None]
  - PAIN [None]
  - CARDIAC FAILURE CONGESTIVE [None]
  - TREMOR [None]
  - URINARY TRACT INFECTION [None]
